FAERS Safety Report 24920711 (Version 1)
Quarter: 2025Q1

REPORT INFORMATION
  Report Type: Spontaneous
  Country: DE (occurrence: DE)
  Receive Date: 20250204
  Receipt Date: 20250204
  Transmission Date: 20250408
  Serious: Yes (Hospitalization)
  Sender: ROCHE
  Company Number: None

PATIENT
  Age: 41 Year
  Sex: Female
  Weight: 84 kg

DRUGS (8)
  1. TAMIFLU [Suspect]
     Active Substance: OSELTAMIVIR PHOSPHATE
     Indication: Influenza
     Route: 048
     Dates: start: 20250119
  2. Norepinephrin [Concomitant]
     Route: 040
     Dates: start: 20250119
  3. HYDROCORTISONE [Concomitant]
     Active Substance: HYDROCORTISONE
     Route: 040
     Dates: start: 20250119
  4. Ampicillin/Sulbactam 2g/1g [Concomitant]
     Dosage: 1-1-1
     Route: 040
     Dates: start: 20250119
  5. Desmopressin 0,2mg [Concomitant]
     Dosage: 1-0,5-1
     Route: 048
  6. Norditropin 0,3mg [Concomitant]
     Dosage: 0-0-1
     Route: 048
  7. SERTRALINE [Concomitant]
     Active Substance: SERTRALINE HYDROCHLORIDE
     Dosage: 1-0-0
     Route: 048
  8. L-Thyroxin 125?g [Concomitant]
     Dosage: 1-0-0
     Route: 048

REACTIONS (2)
  - Electrocardiogram QT prolonged [Recovering/Resolving]
  - Bradycardia [Recovering/Resolving]

NARRATIVE: CASE EVENT DATE: 20250120
